FAERS Safety Report 18582335 (Version 1)
Quarter: 2020Q4

REPORT INFORMATION
  Report Type: Spontaneous
  Country: US (occurrence: US)
  Receive Date: 20201204
  Receipt Date: 20201204
  Transmission Date: 20210114
  Serious: No
  Sender: FDA-Public Use
  Company Number: None

PATIENT
  Age: 5 Year
  Sex: Female

DRUGS (6)
  1. BACLOFEN. [Concomitant]
     Active Substance: BACLOFEN
  2. PHENOBARB [Concomitant]
     Active Substance: PHENOBARBITAL SODIUM
  3. VIGABATRIN. [Suspect]
     Active Substance: VIGABATRIN
     Indication: LENNOX-GASTAUT SYNDROME
     Dates: start: 20201110
  4. BENZYLAC [Concomitant]
  5. MELATONIN [Concomitant]
     Active Substance: MELATONIN
  6. VIMPAIT [Concomitant]

REACTIONS (2)
  - Hypophagia [None]
  - Hypersomnia [None]

NARRATIVE: CASE EVENT DATE: 20201127
